FAERS Safety Report 24528458 (Version 1)
Quarter: 2024Q4

REPORT INFORMATION
  Report Type: Spontaneous
  Country: US (occurrence: None)
  Receive Date: 20241018
  Receipt Date: 20241018
  Transmission Date: 20250115
  Serious: Yes (Hospitalization)
  Sender: Public
  Company Number: None

PATIENT
  Sex: Female

DRUGS (10)
  1. MYCOPHENOLIC ACID [Suspect]
     Active Substance: MYCOPHENOLIC ACID
     Indication: Renal transplant
     Dosage: FREQ: TAKE ONE TABLET BY MOUTH EVERY 12 HOURS?
     Route: 048
     Dates: start: 20210818
  2. ACTONEL TAB 35MG [Concomitant]
  3. CYCLOSPORINE MODIFIED [Concomitant]
  4. FERROUS SULF TAB 325MG [Concomitant]
  5. LISINOPRIL [Concomitant]
     Active Substance: LISINOPRIL
  6. MULTI-VITAMN TAB [Concomitant]
  7. MYFORTIC [Concomitant]
     Active Substance: MYCOPHENOLATE SODIUM
  8. NORVASC [Suspect]
     Active Substance: AMLODIPINE BESYLATE
  9. OCUVITE LUTE CAP [Concomitant]
  10. PREDNISONE [Concomitant]
     Active Substance: PREDNISONE

REACTIONS (1)
  - Surgery [None]
